FAERS Safety Report 11452256 (Version 1)
Quarter: 2015Q3

REPORT INFORMATION
  Report Type: Spontaneous
  Country: US (occurrence: None)
  Receive Date: 20150902
  Receipt Date: 20150902
  Transmission Date: 20151125
  Serious: Yes (Hospitalization)
  Sender: FDA-Public Use
  Company Number: None

PATIENT
  Age: 32 Year
  Sex: Female

DRUGS (3)
  1. ATORVASTATIN VS PLACEBO [Suspect]
     Active Substance: ATORVASTATIN
     Indication: PROPHYLAXIS
     Route: 048
     Dates: start: 20150810
  2. ATORVASTATIN VS PLACEBO [Suspect]
     Active Substance: ATORVASTATIN
     Indication: CARDIOTOXICITY
     Route: 048
     Dates: start: 20150810
  3. PREVENT CARDIOTOXICITY [Concomitant]

REACTIONS (1)
  - Febrile neutropenia [None]

NARRATIVE: CASE EVENT DATE: 20150818
